FAERS Safety Report 15116787 (Version 1)
Quarter: 2018Q3

REPORT INFORMATION
  Report Type: Spontaneous
  Country: US (occurrence: US)
  Receive Date: 20180706
  Receipt Date: 20180706
  Transmission Date: 20181010
  Serious: No
  Sender: FDA-Public Use
  Company Number: US-009507513-1807USA002921

PATIENT
  Age: 93 Year
  Sex: Female

DRUGS (2)
  1. ASMANEX [Suspect]
     Active Substance: MOMETASONE FUROATE
     Dosage: ROUTE OF ADMINISTRATION: ORAL INHALATION
     Route: 055
  2. ASMANEX [Suspect]
     Active Substance: MOMETASONE FUROATE
     Dosage: ROUTE OF ADMINISTRATION: ORAL INHALATION
     Route: 055

REACTIONS (3)
  - Hearing disability [Unknown]
  - Therapeutic response increased [Unknown]
  - Product quality issue [Unknown]
